FAERS Safety Report 24000405 (Version 2)
Quarter: 2024Q3

REPORT INFORMATION
  Report Type: Spontaneous
  Country: JP (occurrence: JP)
  Receive Date: 20240621
  Receipt Date: 20240713
  Transmission Date: 20241016
  Serious: Yes (Hospitalization, Other)
  Sender: ARDELYX
  Company Number: JP-ARDELYX-2024ARDX004470

PATIENT
  Age: 75 Year
  Sex: Male

DRUGS (1)
  1. TENAPANOR HYDROCHLORIDE [Suspect]
     Active Substance: TENAPANOR HYDROCHLORIDE
     Indication: Hyperphosphataemia
     Dosage: 5 MG, BID
     Route: 048
     Dates: start: 20240329, end: 20240514

REACTIONS (2)
  - Diverticulum intestinal haemorrhagic [Recovered/Resolved]
  - Diarrhoea [Unknown]

NARRATIVE: CASE EVENT DATE: 20240514
